FAERS Safety Report 7088609-0 (Version None)
Quarter: 2010Q4

REPORT INFORMATION
  Report Type: 
  Country: None (occurrence: None)
  Receive Date: 20101108
  Receipt Date: 20101103
  Transmission Date: 20110411
  Serious: Yes (Death)
  Sender: FDA-Public Use
  Company Number: SA-CELGENEUS-259-21880-10092387

PATIENT
  Age: 48 Year
  Sex: Male

DRUGS (2)
  1. REVLIMID [Suspect]
     Indication: ACUTE MYELOID LEUKAEMIA
     Route: 048
     Dates: start: 20100727, end: 20100901
  2. METOCLOPRAMIDE [Concomitant]
     Indication: VOMITING
     Route: 051
     Dates: start: 20100903, end: 20100907

REACTIONS (1)
  - BACTERIAL SEPSIS [None]
